FAERS Safety Report 14310182 (Version 2)
Quarter: 2018Q2

REPORT INFORMATION
  Report Type: Spontaneous
  Country: US (occurrence: US)
  Receive Date: 20171220
  Receipt Date: 20180525
  Transmission Date: 20180711
  Serious: No
  Sender: FDA-Public Use
  Company Number: US-ACTELION-A-US2017-164511

PATIENT
  Age: 63 Year
  Sex: Female

DRUGS (7)
  1. METFORMIN [Concomitant]
     Active Substance: METFORMIN HYDROCHLORIDE
  2. TRACLEER [Suspect]
     Active Substance: BOSENTAN
     Indication: PULMONARY ARTERIAL HYPERTENSION
     Dosage: 125 MG, BID
     Route: 048
     Dates: start: 20130624
  3. IRBESARTAN. [Concomitant]
     Active Substance: IRBESARTAN
  4. LATANOPROST. [Concomitant]
     Active Substance: LATANOPROST
  5. SILDENAFIL. [Concomitant]
     Active Substance: SILDENAFIL
  6. WARFARIN [Concomitant]
     Active Substance: WARFARIN
  7. ALPHAGAN P [Concomitant]
     Active Substance: BRIMONIDINE TARTRATE

REACTIONS (6)
  - Cough [Unknown]
  - Glaucoma [Not Recovered/Not Resolved]
  - Pyrexia [Unknown]
  - Choking sensation [Unknown]
  - Drug dose omission [Unknown]
  - Visual impairment [Not Recovered/Not Resolved]

NARRATIVE: CASE EVENT DATE: 2018
